FAERS Safety Report 12728811 (Version 10)
Quarter: 2019Q4

REPORT INFORMATION
  Report Type: Spontaneous
  Country: US (occurrence: US)
  Receive Date: 20160909
  Receipt Date: 20191112
  Transmission Date: 20200122
  Serious: Yes (Hospitalization)
  Sender: FDA-Public Use
  Company Number: US-ACTELION-A-US2016-141674

PATIENT
  Age: 46 Year
  Sex: Female
  Weight: 51.25 kg

DRUGS (10)
  1. OPSUMIT [Suspect]
     Active Substance: MACITENTAN
     Indication: PULMONARY HYPERTENSION
     Dosage: 10 MG, QD
     Route: 048
     Dates: start: 20150501
  2. UPTRAVI [Suspect]
     Active Substance: SELEXIPAG
     Dosage: UNK
     Route: 048
  3. ADCIRCA [Concomitant]
     Active Substance: TADALAFIL
  4. UPTRAVI [Suspect]
     Active Substance: SELEXIPAG
     Dosage: 1600 MCG, BID
     Route: 048
  5. UPTRAVI [Suspect]
     Active Substance: SELEXIPAG
     Dosage: 1200 MCG, BID
     Route: 048
  6. COUMADIN [Concomitant]
     Active Substance: WARFARIN SODIUM
  7. UPTRAVI [Suspect]
     Active Substance: SELEXIPAG
     Indication: PULMONARY HYPERTENSION
     Dosage: 1000 MCG, BID
     Route: 048
     Dates: start: 20160510
  8. UPTRAVI [Suspect]
     Active Substance: SELEXIPAG
     Dosage: 1400 MCG, BID
     Route: 048
  9. RECLAST [Concomitant]
     Active Substance: ZOLEDRONIC ACID
  10. LETAIRIS [Concomitant]
     Active Substance: AMBRISENTAN

REACTIONS (16)
  - Systemic lupus erythematosus [Unknown]
  - Dizziness [Unknown]
  - Osteoporosis [Unknown]
  - Pulmonary arterial pressure increased [Unknown]
  - Decreased appetite [Unknown]
  - Hospitalisation [Unknown]
  - Unevaluable event [Unknown]
  - Blood creatine increased [Unknown]
  - Pain in jaw [Unknown]
  - Nasopharyngitis [Not Recovered/Not Resolved]
  - Facial pain [Unknown]
  - Oral pain [Unknown]
  - Muscle spasms [Unknown]
  - Loss of consciousness [Unknown]
  - Sinusitis [Unknown]
  - Weight decreased [Unknown]

NARRATIVE: CASE EVENT DATE: 201909
